FAERS Safety Report 9281953 (Version 1)
Quarter: 2013Q2

REPORT INFORMATION
  Report Type: Spontaneous
  Country: IR (occurrence: IR)
  Receive Date: 20130510
  Receipt Date: 20130510
  Transmission Date: 20140414
  Serious: Yes (Other)
  Sender: FDA-Public Use
  Company Number: IR-009507513-1305IRN003426

PATIENT
  Age: 40 Year
  Sex: Female

DRUGS (2)
  1. PEG-INTRON [Suspect]
     Indication: HEPATITIS C
     Dosage: 100 MICROGRAM, QW
     Route: 058
     Dates: start: 20121225
  2. REBETOL [Suspect]
     Indication: HEPATITIS C
     Dosage: 1000MG/DAY
     Route: 048
     Dates: start: 20121225

REACTIONS (2)
  - Convulsion [Recovered/Resolved]
  - Ageusia [Not Recovered/Not Resolved]
